FAERS Safety Report 13647432 (Version 1)
Quarter: 2017Q2

REPORT INFORMATION
  Report Type: Spontaneous
  Country: US (occurrence: US)
  Receive Date: 20170613
  Receipt Date: 20170613
  Transmission Date: 20170830
  Serious: Yes (Hospitalization)
  Sender: FDA-Public Use
  Company Number: None

PATIENT
  Age: 22 Year
  Sex: Male

DRUGS (9)
  1. PULMOZYME [Suspect]
     Active Substance: DORNASE ALFA
     Indication: CYSTIC FIBROSIS
     Route: 055
     Dates: start: 20150902
  2. NASONEX [Concomitant]
     Active Substance: MOMETASONE FUROATE
  3. VITAMIN D [Concomitant]
     Active Substance: CHOLECALCIFEROL
  4. ALBUTEROL. [Concomitant]
     Active Substance: ALBUTEROL
  5. AQUADEKS [Concomitant]
     Active Substance: MINERALS\VITAMINS
  6. SINGULAIR [Concomitant]
     Active Substance: MONTELUKAST SODIUM
  7. TOBI [Concomitant]
     Active Substance: TOBRAMYCIN
  8. CIPRO [Concomitant]
     Active Substance: CIPROFLOXACIN HYDROCHLORIDE
  9. PRILOSEC [Concomitant]
     Active Substance: OMEPRAZOLE MAGNESIUM

REACTIONS (5)
  - Infective pulmonary exacerbation of cystic fibrosis [None]
  - Dyspnoea [None]
  - Cough [None]
  - Asthenia [None]
  - Productive cough [None]
